FAERS Safety Report 11262345 (Version 1)
Quarter: 2015Q3

REPORT INFORMATION
  Report Type: Spontaneous
  Country: US (occurrence: US)
  Receive Date: 20150710
  Receipt Date: 20150710
  Transmission Date: 20151125
  Serious: No
  Sender: FDA-Public Use
  Company Number: US-PURDUE-USA-2015-0123439

PATIENT
  Sex: Female

DRUGS (2)
  1. BUTRANS [Suspect]
     Active Substance: BUPRENORPHINE
     Indication: PAIN
     Dosage: 20 MCG/HR EVERY 4 DAYS
     Route: 062
     Dates: start: 201504
  2. BUTRANS [Suspect]
     Active Substance: BUPRENORPHINE
     Dosage: 20 MCG/HR, EVERY 4 DAYS
     Route: 062
     Dates: start: 201503, end: 201504

REACTIONS (5)
  - Application site pruritus [Recovering/Resolving]
  - Inappropriate schedule of drug administration [Unknown]
  - Application site pain [Recovering/Resolving]
  - Application site swelling [Recovering/Resolving]
  - Application site erythema [Recovering/Resolving]
